FAERS Safety Report 21920072 (Version 1)
Quarter: 2023Q1

REPORT INFORMATION
  Report Type: Spontaneous
  Country: US (occurrence: US)
  Receive Date: 20230127
  Receipt Date: 20230127
  Transmission Date: 20230418
  Serious: No
  Sender: FDA-Public Use
  Company Number: US-ALKERMES INC.-ALK-2023-000321

PATIENT
  Sex: Female

DRUGS (1)
  1. VIVITROL [Suspect]
     Active Substance: NALTREXONE
     Indication: Alcoholism
     Dosage: 380 MILLIGRAM, QMO
     Route: 030

REACTIONS (7)
  - Joint swelling [Recovering/Resolving]
  - Discomfort [Unknown]
  - Injection site reaction [Recovering/Resolving]
  - Injection site haematoma [Recovering/Resolving]
  - Injection site pain [Unknown]
  - Hypersensitivity [Unknown]
  - Rash pruritic [Recovering/Resolving]
